FAERS Safety Report 9517379 (Version 1)
Quarter: 2013Q3

REPORT INFORMATION
  Report Type: Report from Study
  Country: CN (occurrence: CN)
  Receive Date: 20130911
  Receipt Date: 20130911
  Transmission Date: 20140515
  Serious: Yes (Hospitalization, Other)
  Sender: FDA-Public Use
  Company Number: CN-GILEAD-2013-0082801

PATIENT
  Age: 33 Year
  Sex: Male

DRUGS (1)
  1. ADEFOVIR DIPIVOXIL [Suspect]
     Indication: CHRONIC HEPATITIS B
     Dosage: 10 MG, QD

REACTIONS (7)
  - Osteoporosis [Recovered/Resolved]
  - Vitamin D decreased [Unknown]
  - Gait disturbance [Recovered/Resolved]
  - Bone pain [Recovering/Resolving]
  - Renal tubular disorder [Recovered/Resolved]
  - Hypophosphataemia [Recovered/Resolved with Sequelae]
  - Osteomalacia [Recovered/Resolved with Sequelae]
